FAERS Safety Report 21585898 (Version 6)
Quarter: 2025Q3

REPORT INFORMATION
  Report Type: Spontaneous
  Country: EU (occurrence: EU)
  Receive Date: 20221111
  Receipt Date: 20250930
  Transmission Date: 20251020
  Serious: Yes (Other)
  Sender: MERCK SHARP & DOHME LLC
  Company Number: None

PATIENT
  Age: 70 Year
  Sex: Male

DRUGS (3)
  1. PEMBROLIZUMAB [Suspect]
     Active Substance: PEMBROLIZUMAB
     Indication: Non-small cell lung cancer metastatic
     Dosage: DOSE DESCRIPTION : 4 CYCLES, Q3W
  2. PEMETREXED [Suspect]
     Active Substance: PEMETREXED
     Indication: Non-small cell lung cancer
     Dosage: DOSE DESCRIPTION : 4 CYCLES, Q3W
  3. ANGIOTENSIN II [Concomitant]
     Active Substance: ANGIOTENSIN II

REACTIONS (1)
  - Acute kidney injury [Unknown]
